FAERS Safety Report 12622063 (Version 1)
Quarter: 2016Q3

REPORT INFORMATION
  Report Type: Spontaneous
  Country: NL (occurrence: NL)
  Receive Date: 20160804
  Receipt Date: 20160804
  Transmission Date: 20161109
  Serious: Yes (Death)
  Sender: FDA-Public Use
  Company Number: NL-ASTRAZENECA-2016SE82233

PATIENT
  Age: 66 Year
  Sex: Male

DRUGS (1)
  1. ZOLADEX [Suspect]
     Active Substance: GOSERELIN ACETATE
     Route: 058
     Dates: start: 20140630

REACTIONS (1)
  - Death [Fatal]

NARRATIVE: CASE EVENT DATE: 20160713
